FAERS Safety Report 6710652-9 (Version None)
Quarter: 2010Q2

REPORT INFORMATION
  Report Type: 
  Country: None (occurrence: None)
  Receive Date: 20100504
  Receipt Date: 20100504
  Transmission Date: 20101027
  Serious: Yes (Hospitalization)
  Sender: FDA-Public Use
  Company Number: None

PATIENT
  Age: 73 Year
  Sex: Female

DRUGS (14)
  1. CIPRO [Suspect]
     Indication: URINARY TRACT INFECTION
     Dosage: PO; PAST 5 DAYS
     Route: 048
  2. CHRONIC HOME MEDS [Concomitant]
  3. GABAPENTIN [Concomitant]
  4. METROPROLOL ER [Concomitant]
  5. SIMVASTATIN [Concomitant]
  6. FOLIC ACID [Concomitant]
  7. LISINOPRIL [Concomitant]
  8. KLONOPIN [Concomitant]
  9. MULTI-VITAMIN [Concomitant]
  10. ALLOPURINOL [Concomitant]
  11. SENOKOT [Concomitant]
  12. TYLENOL-500 [Concomitant]
  13. ATARAX [Concomitant]
  14. PERCOCET [Concomitant]

REACTIONS (7)
  - DRUG HYPERSENSITIVITY [None]
  - ERYTHEMA [None]
  - FEELING HOT [None]
  - JAW DISORDER [None]
  - PRURITUS [None]
  - URTICARIA [None]
  - WHITE BLOOD CELL COUNT INCREASED [None]
